FAERS Safety Report 9700572 (Version 2)
Quarter: 2013Q4

REPORT INFORMATION
  Report Type: Report from Study
  Country: BR (occurrence: BR)
  Receive Date: 20131121
  Receipt Date: 20131213
  Transmission Date: 20140711
  Serious: Yes (Other)
  Sender: FDA-Public Use
  Company Number: PHHY2013BR131664

PATIENT
  Sex: Female
  Weight: 90 kg

DRUGS (9)
  1. DIOVAN [Suspect]
  2. DIOVAN HCT [Suspect]
     Indication: BLOOD PRESSURE
     Dosage: 1 DF (80/12.5 MG), QD (IN THE MORNING)
     Route: 048
  3. DIOVAN HCT [Suspect]
     Dosage: 1 DF, (320MG VALS, 12.5MG HCT), QD (AFTER BREAKFAST)
     Route: 048
  4. AMLODIPINE BESYLATE [Suspect]
     Indication: HYPERTENSION
     Dosage: UNK UKN, UNK
  5. AMLODIPINE BESYLATE [Suspect]
     Dosage: 2 DF, UNK
  6. ALPRAZOLAM [Suspect]
     Indication: ANXIETY
     Dosage: UNK UKN, UNK
  7. ALPRAZOLAM [Suspect]
     Dosage: 0.5 DF, (HALF TABLET)
  8. AMLODIPINE BESILATE [Concomitant]
     Indication: CARDIAC DISORDER
     Dosage: 0.5 DF, UNK
  9. SIMVASTATIN [Concomitant]
     Indication: BLOOD CHOLESTEROL
     Dosage: 20 MG, UNK

REACTIONS (8)
  - Weight increased [Unknown]
  - Varicose vein [Unknown]
  - Emotional disorder [Unknown]
  - Walking disability [Unknown]
  - Pain in extremity [Unknown]
  - Local swelling [Unknown]
  - Hypertension [Unknown]
  - Somnolence [Unknown]
